FAERS Safety Report 11743711 (Version 1)
Quarter: 2015Q4

REPORT INFORMATION
  Report Type: Spontaneous
  Country: GB (occurrence: CA)
  Receive Date: 20151116
  Receipt Date: 20151116
  Transmission Date: 20160304
  Serious: Yes (Other)
  Sender: FDA-Public Use
  Company Number: PHHY2015CA144803

PATIENT
  Age: 67 Year
  Sex: Male

DRUGS (1)
  1. CO-AMOXICLAV [Suspect]
     Active Substance: AMOXICILLIN\CLAVULANIC ACID
     Indication: SINUSITIS
     Dosage: UNK
     Route: 065
     Dates: start: 2015, end: 2015

REACTIONS (8)
  - Sleep disorder [Unknown]
  - Hepatic enzyme increased [Recovering/Resolving]
  - Chromaturia [Unknown]
  - Fatigue [Unknown]
  - Cholestasis [Recovering/Resolving]
  - Blood bilirubin increased [Recovering/Resolving]
  - Faeces pale [Recovering/Resolving]
  - Pruritus [Not Recovered/Not Resolved]

NARRATIVE: CASE EVENT DATE: 201509
